FAERS Safety Report 5231440-9 (Version None)
Quarter: 2007Q1

REPORT INFORMATION
  Report Type: 
  Country: None (occurrence: None)
  Receive Date: 20070206
  Receipt Date: 20070202
  Transmission Date: 20070707
  Serious: Yes (Other)
  Sender: FDA-Public Use
  Company Number: US-SHR-US-2006-040109

PATIENT
  Age: 62 Year
  Sex: Male

DRUGS (3)
  1. CLIMARA [Suspect]
     Indication: PROSTATE CANCER
     Dosage: .6 MG/D, CONT
     Route: 062
     Dates: start: 20061001
  2. CLIMARA [Suspect]
     Dosage: .2 MG/D, CONT
     Route: 062
     Dates: end: 20061202
  3. LOVENOX [Concomitant]
     Dosage: 100 MG, 2X/DAY

REACTIONS (1)
  - CARDIAC FAILURE CONGESTIVE [None]
